FAERS Safety Report 6046610-X (Version None)
Quarter: 2009Q1

REPORT INFORMATION
  Report Type: 
  Country: None (occurrence: None)
  Receive Date: 20090122
  Receipt Date: 20090114
  Transmission Date: 20090719
  Serious: Yes (Hospitalization, Other)
  Sender: FDA-Public Use
  Company Number: PHHY2009JP01577

PATIENT
  Age: 33 Year
  Sex: Male

DRUGS (2)
  1. DIOVAN [Suspect]
     Indication: MALIGNANT HYPERTENSION
     Dosage: 80 MG
     Route: 048
  2. AMLODIPINE BESILATE [Concomitant]
     Dosage: 5MG
     Route: 048

REACTIONS (2)
  - INTESTINAL ISCHAEMIA [None]
  - MALIGNANT HYPERTENSION [None]
